FAERS Safety Report 4742723-0 (Version None)
Quarter: 2005Q3

REPORT INFORMATION
  Report Type: 
  Country: None (occurrence: None)
  Receive Date: 20050810
  Receipt Date: 20050810
  Transmission Date: 20060218
  Serious: Yes (Life-Threatening, Disabling, Other)
  Sender: FDA-Public Use
  Company Number: None

PATIENT
  Age: 54 Year
  Sex: Female
  Weight: 44.4525 kg

DRUGS (1)
  1. VIOXX [Suspect]
     Indication: BACK PAIN
     Dosage: 1 TO 1/2 TAB DAILY
     Dates: start: 20031201, end: 20040501

REACTIONS (12)
  - CARDIAC DISORDER [None]
  - DEPRESSION [None]
  - FEELING HOT [None]
  - HYPERTENSION [None]
  - INSOMNIA [None]
  - MALAISE [None]
  - NAUSEA [None]
  - PAIN IN EXTREMITY [None]
  - SHOULDER PAIN [None]
  - SYNCOPE [None]
  - THINKING ABNORMAL [None]
  - VOMITING [None]
